FAERS Safety Report 6269839-4 (Version None)
Quarter: 2009Q3

REPORT INFORMATION
  Report Type: 
  Country: None (occurrence: None)
  Receive Date: 20090716
  Receipt Date: 20090704
  Transmission Date: 20100115
  Serious: Yes (Other)
  Sender: FDA-Public Use
  Company Number: IT-JNJFOC-20090702208

PATIENT
  Age: 53 Year
  Sex: Female

DRUGS (9)
  1. INFLIXIMAB [Suspect]
     Indication: RHEUMATOID ARTHRITIS
     Dosage: 4 INFUSIONS OVER 2 MONTHS DURATION
     Route: 042
  2. PREDNISONE TAB [Concomitant]
  3. LEFLUNOMIDE [Concomitant]
  4. NSAIDS [Concomitant]
  5. TICLOPIDINE HCL [Concomitant]
  6. ATENOLOL [Concomitant]
  7. HYDROCHLOROTHIAZIDE [Concomitant]
  8. METFORMIN HCL [Concomitant]
  9. ATORVASTATIN CALCIUM [Concomitant]

REACTIONS (3)
  - DRUG INEFFECTIVE [None]
  - INFUSION RELATED REACTION [None]
  - VENTRICULAR EXTRASYSTOLES [None]
